FAERS Safety Report 18223784 (Version 1)
Quarter: 2020Q3

REPORT INFORMATION
  Report Type: Spontaneous
  Country: US (occurrence: US)
  Receive Date: 20200902
  Receipt Date: 20200902
  Transmission Date: 20201103
  Serious: Yes (Hospitalization, Other)
  Sender: FDA-Public Use
  Company Number: US-MYLANLABS-2020M1075204

PATIENT
  Age: 34 Year
  Sex: Male

DRUGS (5)
  1. PREDNISOLONE. [Suspect]
     Active Substance: PREDNISOLONE
     Indication: UVEITIS
     Dosage: THREE TIME DAILY IN BOTH EYES.
     Route: 065
  2. MYCOPHENOLATE MOFETIL. [Suspect]
     Active Substance: MYCOPHENOLATE MOFETIL
     Indication: UVEITIS
     Dosage: 500 MILLIGRAM, BID
     Route: 065
  3. TRIAMCINOLONE [Suspect]
     Active Substance: TRIAMCINOLONE
     Indication: UVEITIS
     Dosage: SUB?TENON
  4. PREDNISONE. [Suspect]
     Active Substance: PREDNISONE
     Indication: UVEITIS
     Dosage: 25 MILLIGRAM, QD
     Route: 065
  5. ADALIMUMAB [Suspect]
     Active Substance: ADALIMUMAB
     Indication: UVEITIS
     Dosage: SIX TREATMENTS
     Route: 058

REACTIONS (10)
  - Vitreous haemorrhage [Recovered/Resolved]
  - Hepatotoxicity [Unknown]
  - Condition aggravated [Recovering/Resolving]
  - Visual impairment [Recovering/Resolving]
  - Osteonecrosis [Unknown]
  - Insomnia [Unknown]
  - Eye pain [Recovering/Resolving]
  - Inflammation [Recovered/Resolved]
  - Cataract [Recovered/Resolved]
  - Cystoid macular oedema [Recovered/Resolved]
